FAERS Safety Report 14612888 (Version 17)
Quarter: 2022Q3

REPORT INFORMATION
  Report Type: Spontaneous
  Country: GB (occurrence: GB)
  Receive Date: 20180308
  Receipt Date: 20220721
  Transmission Date: 20221026
  Serious: Yes (Other)
  Sender: FDA-Public Use
  Company Number: GB-JNJFOC-20180116422

PATIENT
  Age: 44 Year
  Sex: Male

DRUGS (6)
  1. METHYLPHENIDATE HYDROCHLORIDE [Suspect]
     Active Substance: METHYLPHENIDATE HYDROCHLORIDE
     Indication: Product used for unknown indication
     Dosage: UNSPECIFIED, BETWEEN FEBRUARY 2017 AND MAY 2017
     Route: 065
     Dates: start: 20170201, end: 20170501
  2. METHYLPHENIDATE HYDROCHLORIDE [Suspect]
     Active Substance: METHYLPHENIDATE HYDROCHLORIDE
     Dosage: UNK (ABUSE);
     Route: 065
     Dates: start: 20170201, end: 20170201
  3. PREGABALIN [Suspect]
     Active Substance: PREGABALIN
     Indication: Product used for unknown indication
     Dosage: UNSPECIFIED, BETWEEN FEBRUARY 2017 AND MAY 2017
     Route: 065
     Dates: start: 20170201, end: 20170501
  4. PREGABALIN [Suspect]
     Active Substance: PREGABALIN
     Dosage: UNK, ABUSE;
     Route: 065
     Dates: start: 201702, end: 201705
  5. AMPHETAMINE [Concomitant]
     Active Substance: AMPHETAMINE
     Indication: Drug abuse
  6. COCAINE [Concomitant]
     Active Substance: COCAINE
     Indication: Drug abuse

REACTIONS (4)
  - Loss of consciousness [Recovered/Resolved]
  - Prescription drug used without a prescription [Recovered/Resolved]
  - Drug dependence [Recovered/Resolved]
  - Drug abuse [Recovered/Resolved]
